FAERS Safety Report 23520689 (Version 1)
Quarter: 2024Q1

REPORT INFORMATION
  Report Type: 
  Country: None (occurrence: None)
  Receive Date: 20240214
  Receipt Date: 20240214
  Transmission Date: 20240409
  Serious: No
  Sender: FDA-Public Use
  Company Number: US-ROCHE-3507196

PATIENT

DRUGS (12)
  1. RITUXAN [Suspect]
     Active Substance: RITUXIMAB
  2. CITALOPRAM HYDROCHLORIDE [Concomitant]
     Active Substance: CITALOPRAM HYDROCHLORIDE
  3. FAMOTIDINE [Concomitant]
     Active Substance: FAMOTIDINE
  4. GABAPENTIN [Concomitant]
     Active Substance: GABAPENTIN
  5. HYDRALAZINE [Concomitant]
     Active Substance: HYDRALAZINE HYDROCHLORIDE
  6. INSULIN ASPART [Concomitant]
     Active Substance: INSULIN ASPART
  7. LOSARTAN POTASSIUM [Concomitant]
     Active Substance: LOSARTAN POTASSIUM
  8. MEMANTINE [Concomitant]
     Active Substance: MEMANTINE
  9. ONDANSETRON [Concomitant]
     Active Substance: ONDANSETRON
  10. PIOGLITAZONE [Concomitant]
     Active Substance: PIOGLITAZONE
  11. TAMSULOSIN HYDROCHLORIDE [Concomitant]
     Active Substance: TAMSULOSIN HYDROCHLORIDE
  12. TRAZODONE HCL [Concomitant]
     Active Substance: TRAZODONE HYDROCHLORIDE

REACTIONS (3)
  - Dehydration [None]
  - Pneumonia [None]
  - Fatigue [None]
